FAERS Safety Report 8341529-3 (Version None)
Quarter: 2012Q2

REPORT INFORMATION
  Report Type: 
  Country: None (occurrence: None)
  Receive Date: 20120507
  Receipt Date: 20120501
  Transmission Date: 20120825
  Serious: Yes (Hospitalization)
  Sender: FDA-Public Use
  Company Number: FR-GILEAD-E2B_00001181

PATIENT
  Sex: Male

DRUGS (10)
  1. GLIBENCEMIDE [Concomitant]
  2. LISINOPRIL [Concomitant]
  3. SPIRONOLACTONE [Concomitant]
  4. AMBRISENTAN [Suspect]
     Indication: PULMONARY ARTERIAL HYPERTENSION
     Route: 048
     Dates: start: 20110323
  5. TADALAFIL [Suspect]
     Indication: PULMONARY ARTERIAL HYPERTENSION
     Dosage: 20 MG, QD
     Route: 048
     Dates: start: 20110323
  6. SIMVASTATIN [Concomitant]
  7. METFORMIN HCL [Concomitant]
  8. RAMIPRIL [Concomitant]
     Dosage: 5 MG, QD
  9. FLUORINDIONE [Concomitant]
     Dosage: 25 MG, QD
  10. LYSINE ASPIRIN [Concomitant]
     Dosage: 75 MG, QD

REACTIONS (4)
  - SUPRAVENTRICULAR TACHYARRHYTHMIA [None]
  - CARDIAC FAILURE [None]
  - SEPSIS [None]
  - ACUTE RESPIRATORY FAILURE [None]
